FAERS Safety Report 17952034 (Version 2)
Quarter: 2020Q3

REPORT INFORMATION
  Report Type: Spontaneous
  Country: JP (occurrence: JP)
  Receive Date: 20200626
  Receipt Date: 20200715
  Transmission Date: 20201103
  Serious: Yes (Hospitalization)
  Sender: FDA-Public Use
  Company Number: JP-JNJFOC-20200629807

PATIENT
  Age: 72 Year
  Sex: Female

DRUGS (1)
  1. INVEGA [Suspect]
     Active Substance: PALIPERIDONE
     Indication: PRODUCT USED FOR UNKNOWN INDICATION
     Dosage: UNKNOWN?PALIPERIDONE:3MG
     Route: 048
     Dates: start: 20200615

REACTIONS (1)
  - Pyelonephritis acute [Unknown]

NARRATIVE: CASE EVENT DATE: 20200615
